FAERS Safety Report 24119813 (Version 1)
Quarter: 2024Q3

REPORT INFORMATION
  Report Type: Report from Study
  Country: US (occurrence: US)
  Receive Date: 20240722
  Receipt Date: 20240722
  Transmission Date: 20241016
  Serious: Yes (Other)
  Sender: ROCHE
  Company Number: US-ROCHE-10000011761

PATIENT
  Age: 62 Year
  Sex: Female

DRUGS (25)
  1. OCREVUS [Suspect]
     Active Substance: OCRELIZUMAB
     Indication: Multiple sclerosis
     Dosage: LAST DOSE ADMINISTERED ON: 29/JAN/2024 AND 15/FEB/2024.?AND THEN 600 MG EVERY 6 MONTHS.
     Route: 042
     Dates: start: 20240125
  2. ACETAMINOPHEN\ASCORBIC ACID [Concomitant]
     Active Substance: ACETAMINOPHEN\ASCORBIC ACID
  3. CLOPIBRIT [Concomitant]
  4. NOVOLOG [Concomitant]
     Active Substance: INSULIN ASPART
  5. LAMOTRIGINE [Concomitant]
     Active Substance: LAMOTRIGINE
  6. LEVOTHYROXINE [Concomitant]
     Active Substance: LEVOTHYROXINE\LEVOTHYROXINE SODIUM
  7. NITROGLYCERIN [Concomitant]
     Active Substance: NITROGLYCERIN
  8. ROSUVASTATIN [Concomitant]
     Active Substance: ROSUVASTATIN
  9. FUROSEMIDE ACCORD [FUROSEMIDE] [Concomitant]
  10. NITROFURANTOIN [Concomitant]
     Active Substance: NITROFURANTOIN
  11. AMLODIPINE BESYLATE [Concomitant]
     Active Substance: AMLODIPINE BESYLATE
  12. ATORVASTATIN [Concomitant]
     Active Substance: ATORVASTATIN
  13. ISORBIDE [ISOSORBIDE DINITRATE] [Concomitant]
  14. METOPROLOL [Concomitant]
     Active Substance: METOPROLOL
  15. BYSTOLIC [Concomitant]
     Active Substance: NEBIVOLOL HYDROCHLORIDE
  16. POTASSIUM AGUETTANT [Concomitant]
  17. CHOLECALCIFEROL [Concomitant]
     Active Substance: CHOLECALCIFEROL
  18. CIPROFLOXACIN [Concomitant]
     Active Substance: CIPROFLOXACIN
  19. CLOPIDOGREL [Concomitant]
     Active Substance: CLOPIDOGREL BISULFATE
  20. CYANOCOBALAMIN [Concomitant]
     Active Substance: CYANOCOBALAMIN
  21. DALFAMPRIDINE [Concomitant]
     Active Substance: DALFAMPRIDINE
  22. EZETIMIBE [Concomitant]
     Active Substance: EZETIMIBE
  23. GENTAMICIN [Concomitant]
     Active Substance: GENTAMICIN
  24. THIAMINE HYDROCHLORIDE [Concomitant]
     Active Substance: THIAMINE HYDROCHLORIDE
  25. POTASSIUM CHLORIDE [Concomitant]
     Active Substance: POTASSIUM CHLORIDE

REACTIONS (9)
  - Fall [Unknown]
  - Balance disorder [Not Recovered/Not Resolved]
  - Ocular hyperaemia [Not Recovered/Not Resolved]
  - Bipolar disorder [Unknown]
  - Prinzmetal angina [Unknown]
  - Gastrooesophageal reflux disease [Unknown]
  - COVID-19 [Unknown]
  - Osteopenia [Unknown]
  - Oedema peripheral [Unknown]
